FAERS Safety Report 4952903-7 (Version None)
Quarter: 2006Q1

REPORT INFORMATION
  Report Type: 
  Country: None (occurrence: None)
  Receive Date: 20060320
  Receipt Date: 20060309
  Transmission Date: 20060701
  Serious: Yes (Hospitalization, Other)
  Sender: FDA-Public Use
  Company Number: 2005144905

PATIENT
  Age: 64 Year
  Sex: Female

DRUGS (4)
  1. LYRICA [Suspect]
     Indication: PAIN
     Dosage: 100 MG (50 MG 2 IN 1 D)
     Dates: start: 20051012, end: 20051001
  2. ANASTROZOLE (ANASTROZOLE) [Concomitant]
  3. SINEMET [Concomitant]
  4. SYNTHROID [Concomitant]

REACTIONS (5)
  - CONFUSIONAL STATE [None]
  - CONVULSION [None]
  - DELIRIUM [None]
  - DIZZINESS [None]
  - HEART RATE INCREASED [None]
